FAERS Safety Report 11359814 (Version 1)
Quarter: 2015Q3

REPORT INFORMATION
  Report Type: Spontaneous
  Country: DK (occurrence: DK)
  Receive Date: 20150809
  Receipt Date: 20150809
  Transmission Date: 20151125
  Serious: Yes (Death)
  Sender: FDA-Public Use
  Company Number: DK-CIPLA LTD.-2015DK06371

PATIENT

DRUGS (4)
  1. CISPLATIN. [Suspect]
     Active Substance: CISPLATIN
     Indication: SMALL CELL LUNG CANCER
     Dosage: 75 MG/M2, DAY 1 OF EACH CYCLE
     Route: 065
  2. CARBOPLATIN. [Suspect]
     Active Substance: CARBOPLATIN
     Indication: SMALL CELL LUNG CANCER
     Dosage: AUC 5,  DAY 1 OF EACH CYCLE
     Route: 065
  3. ETOSID [Suspect]
     Active Substance: ETOPOSIDE
     Dosage: 240 MG/M2, ON DAY 1, 2 AND 3 OF EVERY CYCLE
     Route: 048
  4. ETOSID [Suspect]
     Active Substance: ETOPOSIDE
     Indication: SMALL CELL LUNG CANCER
     Dosage: 120 MG/M2, UNK
     Route: 042

REACTIONS (1)
  - Febrile neutropenia [Fatal]
